FAERS Safety Report 8545670-1 (Version None)
Quarter: 2012Q3

REPORT INFORMATION
  Report Type: 
  Country: None (occurrence: None)
  Receive Date: 20120727
  Receipt Date: 20120719
  Transmission Date: 20120928
  Serious: Yes (Other)
  Sender: FDA-Public Use
  Company Number: ES-UCBSA-055831

PATIENT
  Age: 73 Year
  Sex: Female

DRUGS (6)
  1. HYDROXYCHLOROQUINE SULFATE [Concomitant]
  2. BETAMETHASONE [Concomitant]
     Route: 030
  3. CIMZIA [Suspect]
     Indication: RHEUMATOID ARTHRITIS
     Route: 058
     Dates: start: 20120301, end: 20120301
  4. METHYLPREDNISOLONE [Concomitant]
  5. CIMZIA [Suspect]
     Route: 058
     Dates: start: 20111201, end: 20120101
  6. SULFASALAZINE [Concomitant]
     Indication: RHEUMATOID ARTHRITIS

REACTIONS (2)
  - INFECTION [None]
  - RESPIRATORY TRACT INFECTION [None]
